FAERS Safety Report 7929200-0 (Version None)
Quarter: 2011Q4

REPORT INFORMATION
  Report Type: 
  Country: None (occurrence: None)
  Receive Date: 20111120
  Receipt Date: 20111107
  Transmission Date: 20120403
  Serious: Yes (Death, Other)
  Sender: FDA-Public Use
  Company Number: IL-BRISTOL-MYERS SQUIBB COMPANY-16239170

PATIENT
  Age: 51 Year
  Sex: Female

DRUGS (17)
  1. CYCLOPHOSPHAMIDE [Suspect]
     Indication: BREAST CANCER
  2. MEGESTROL ACETATE [Suspect]
     Indication: HORMONE THERAPY
  3. FUROSEMIDE [Suspect]
  4. FENTANYL-100 [Suspect]
  5. TAMOXIFEN CITRATE [Suspect]
     Indication: HORMONE THERAPY
  6. EXEMESTANE [Suspect]
     Indication: HORMONE THERAPY
  7. MITOMYCIN [Suspect]
     Indication: BREAST CANCER
  8. GEMCITABINE [Suspect]
     Indication: BREAST CANCER
  9. VINORELBINE [Suspect]
     Indication: BREAST CANCER
  10. METHOTREXATE [Suspect]
     Indication: BREAST CANCER
  11. LETROZOLE [Suspect]
     Indication: HORMONE THERAPY
  12. CAPECITABINE [Suspect]
     Indication: BREAST CANCER
  13. DOXORUBICIN HCL [Suspect]
     Indication: BREAST CANCER
  14. FULVESTRANT [Suspect]
     Indication: HORMONE THERAPY
  15. MITOXANTRONE [Suspect]
     Indication: BREAST CANCER
  16. PACLITAXEL [Suspect]
     Indication: BREAST CANCER
  17. OMEPRAZOLE [Suspect]

REACTIONS (2)
  - HEPATIC FAILURE [None]
  - CARDIAC CIRRHOSIS [None]
